FAERS Safety Report 9733542 (Version 2)
Quarter: 2013Q4

REPORT INFORMATION
  Report Type: Report from Study
  Country: IT (occurrence: IT)
  Receive Date: 20131205
  Receipt Date: 20131216
  Transmission Date: 20140711
  Serious: Yes (Disabling)
  Sender: FDA-Public Use
  Company Number: IT-ROCHE-1309704

PATIENT
  Age: 42 Year
  Sex: Female
  Weight: 45 kg

DRUGS (12)
  1. OBINUTUZUMAB [Suspect]
     Indication: DIFFUSE LARGE B-CELL LYMPHOMA
     Dosage: LAST DOSE: 4 MG/ML (VOLUME: 250 ML) ON 08/NOV/2013
     Route: 042
     Dates: start: 20130705
  2. CYCLOPHOSPHAMIDE [Suspect]
     Indication: DIFFUSE LARGE B-CELL LYMPHOMA
     Dosage: LAST DOSE: 975 MG ON 18/OCT/2013
     Route: 042
     Dates: start: 20130706
  3. DOXORUBICIN [Suspect]
     Indication: DIFFUSE LARGE B-CELL LYMPHOMA
     Dosage: LAST DOSE: 65 MG ON 18/OCT/2013
     Route: 042
     Dates: start: 20130706
  4. VINCRISTINE [Suspect]
     Indication: DIFFUSE LARGE B-CELL LYMPHOMA
     Dosage: LAST DOSE: 1.8 MG ON 18/OCT/2013
     Route: 050
     Dates: start: 20130706
  5. PREDNISONE [Suspect]
     Indication: DIFFUSE LARGE B-CELL LYMPHOMA
     Dosage: LAST DOSE: 100 MG ON 08/NOV/2013
     Route: 042
     Dates: start: 20130706
  6. TRIMETON (ITALY) [Concomitant]
     Route: 065
     Dates: start: 20131108, end: 20131108
  7. BENTELAN (BETAMETHASONE) [Concomitant]
     Route: 065
     Dates: start: 20131108, end: 20131108
  8. PANTORC [Concomitant]
     Indication: PROPHYLAXIS
     Dosage: START DATE: 26/NOV/2013. DIE INTRAVENOUS
     Route: 065
  9. SERTRALINE [Concomitant]
     Indication: DEPRESSED MOOD
     Dosage: 1 CP/DIE
     Route: 065
  10. BACTRIM [Concomitant]
     Dosage: 800-160 MG
     Route: 065
     Dates: start: 20130716
  11. ACICLOVIR [Concomitant]
     Dosage: 1 CP X2/DIE
     Route: 065
     Dates: start: 20130714
  12. TACHIPIRINA [Concomitant]
     Indication: PROPHYLAXIS
     Route: 065
     Dates: start: 20131108, end: 20131108

REACTIONS (1)
  - IIIrd nerve paralysis [Not Recovered/Not Resolved]
